FAERS Safety Report 23670526 (Version 3)
Quarter: 2024Q1

REPORT INFORMATION
  Report Type: Spontaneous
  Country: US (occurrence: US)
  Receive Date: 20240326
  Receipt Date: 20240328
  Transmission Date: 20240410
  Serious: Yes (Other)
  Sender: FDA-Public Use
  Company Number: US-ABBVIE-5688232

PATIENT
  Sex: Female

DRUGS (1)
  1. DIVALPROEX SODIUM [Suspect]
     Active Substance: DIVALPROEX SODIUM
     Indication: Epilepsy
     Route: 048

REACTIONS (4)
  - Seizure [Recovered/Resolved]
  - Seizure [Unknown]
  - Product residue present [Not Recovered/Not Resolved]
  - Bowel movement irregularity [Unknown]

NARRATIVE: CASE EVENT DATE: 20230101
